FAERS Safety Report 5068075-7 (Version None)
Quarter: 2006Q3

REPORT INFORMATION
  Report Type: 
  Country: None (occurrence: None)
  Receive Date: 20060802
  Receipt Date: 20060726
  Transmission Date: 20061208
  Serious: Yes (Other)
  Sender: FDA-Public Use
  Company Number: AU-SANOFI-SYNTHELABO-A01200605845

PATIENT
  Sex: Female

DRUGS (1)
  1. ELOXATIN [Suspect]
     Indication: COLORECTAL CANCER
     Route: 042
     Dates: start: 20060705, end: 20060705

REACTIONS (1)
  - RENAL FAILURE ACUTE [None]
